FAERS Safety Report 5203549-7 (Version None)
Quarter: 2007Q1

REPORT INFORMATION
  Report Type: 
  Country: None (occurrence: None)
  Receive Date: 20070110
  Receipt Date: 20070109
  Transmission Date: 20070707
  Serious: Yes (Life-Threatening, Hospitalization)
  Sender: FDA-Public Use
  Company Number: US-GLAXOSMITHKLINE-A0633744A

PATIENT
  Age: 51 Year
  Sex: Male

DRUGS (6)
  1. EPZICOM [Suspect]
     Indication: HIV INFECTION
     Dosage: 1TAB PER DAY
     Route: 048
     Dates: end: 20070103
  2. REYATAZ [Concomitant]
  3. NORVIR [Concomitant]
  4. CLONAZEPAM [Concomitant]
  5. TERAZOSIN HCL [Concomitant]
  6. DOXEPIN HCL [Concomitant]

REACTIONS (10)
  - BLOOD PHOSPHORUS DECREASED [None]
  - DYSPNOEA [None]
  - EXERCISE TOLERANCE DECREASED [None]
  - GAIT DISTURBANCE [None]
  - HYPOXIA [None]
  - MITOCHONDRIAL CYTOPATHY [None]
  - PALPITATIONS [None]
  - RESPIRATORY FAILURE [None]
  - SPEECH DISORDER [None]
  - THERAPEUTIC AGENT TOXICITY [None]
